FAERS Safety Report 21226152 (Version 4)
Quarter: 2022Q4

REPORT INFORMATION
  Report Type: Report from Study
  Country: AR (occurrence: AR)
  Receive Date: 20220818
  Receipt Date: 20221021
  Transmission Date: 20230113
  Serious: Yes (Other)
  Sender: FDA-Public Use
  Company Number: AR-BRISTOL-MYERS SQUIBB COMPANY-2022-089920

PATIENT
  Age: 88 Year
  Sex: Male

DRUGS (1)
  1. ELIQUIS [Suspect]
     Active Substance: APIXABAN
     Indication: Cerebrovascular accident prophylaxis
     Dosage: HE WAS TAKING 2.5 IN THE MORNING AND 2.5 MG AT NIGHT
     Route: 065
     Dates: start: 20200701

REACTIONS (1)
  - Melanocytic naevus [Recovered/Resolved]
